FAERS Safety Report 16255526 (Version 1)
Quarter: 2019Q2

REPORT INFORMATION
  Report Type: Spontaneous
  Country: US (occurrence: US)
  Receive Date: 20190326
  Receipt Date: 20190326
  Transmission Date: 20190711
  Serious: No
  Sender: FDA-Public Use
  Company Number: None

PATIENT
  Age: 75 Year
  Sex: Female

DRUGS (4)
  1. MEKINIST [Suspect]
     Active Substance: TRAMETINIB DIMETHYL SULFOXIDE
     Route: 048
     Dates: start: 20190131
  2. LASIX [Concomitant]
     Active Substance: FUROSEMIDE
  3. ALDACTONE [Concomitant]
     Active Substance: SPIRONOLACTONE
  4. TAFINLAR [Concomitant]
     Active Substance: DABRAFENIB MESYLATE

REACTIONS (2)
  - Chills [None]
  - Dry mouth [None]

NARRATIVE: CASE EVENT DATE: 20190322
